APPROVED DRUG PRODUCT: TIMOPTIC
Active Ingredient: TIMOLOL MALEATE
Strength: EQ 0.25% BASE **Federal Register determination that product was not discontinued or withdrawn for safety or effectiveness reasons**
Dosage Form/Route: SOLUTION/DROPS;OPHTHALMIC
Application: N018086 | Product #001 | TE Code: AT1
Applicant: BAUSCH AND LOMB INC
Approved: Approved Prior to Jan 1, 1982 | RLD: Yes | RS: No | Type: RX